FAERS Safety Report 4710669-X (Version None)
Quarter: 2005Q3

REPORT INFORMATION
  Report Type: 
  Country: None (occurrence: None)
  Receive Date: 20050711
  Receipt Date: 20050518
  Transmission Date: 20060218
  Serious: Yes (Hospitalization, Other)
  Sender: FDA-Public Use
  Company Number: JP-MERCK-0505USA02399

PATIENT
  Age: 78 Year
  Sex: Male

DRUGS (11)
  1. FOSAMAX [Suspect]
     Indication: OSTEOPOROSIS PROPHYLAXIS
     Route: 048
     Dates: start: 20050407, end: 20050416
  2. RISEDRONATE SODIUM [Concomitant]
     Indication: OSTEOPOROSIS PROPHYLAXIS
     Route: 048
     Dates: start: 20050121, end: 20050406
  3. TAKEPRON [Suspect]
     Indication: PROPHYLAXIS AGAINST GASTROINTESTINAL ULCER
     Route: 048
     Dates: start: 20050121, end: 20050416
  4. BAKTAR [Suspect]
     Indication: PROPHYLAXIS
     Route: 048
     Dates: start: 20050121, end: 20050416
  5. KLARICID [Suspect]
     Indication: DIFFUSE PANBRONCHIOLITIS
     Route: 048
     Dates: start: 20050121, end: 20050416
  6. CRAVIT [Suspect]
     Indication: PNEUMONIA
     Route: 048
     Dates: start: 20050407, end: 20050413
  7. PREDNISOLONE [Concomitant]
     Indication: MICROSCOPIC POLYANGIITIS
     Route: 048
     Dates: start: 20050121
  8. PREDNISOLONE [Concomitant]
     Route: 048
     Dates: end: 20050407
  9. PREDNISOLONE [Concomitant]
     Route: 048
     Dates: start: 20050408, end: 20050413
  10. PREDNISOLONE [Concomitant]
     Route: 048
     Dates: start: 20050414, end: 20050417
  11. PREDNISOLONE [Concomitant]
     Route: 048
     Dates: start: 20050418

REACTIONS (10)
  - C-REACTIVE PROTEIN INCREASED [None]
  - CONJUNCTIVAL HYPERAEMIA [None]
  - EPISTAXIS [None]
  - EYE PRURITUS [None]
  - ORAL MUCOSAL DISORDER [None]
  - ORAL PAIN [None]
  - PYREXIA [None]
  - RASH [None]
  - TOXIC EPIDERMAL NECROLYSIS [None]
  - WHITE BLOOD CELL COUNT DECREASED [None]
